FAERS Safety Report 7329417-2 (Version None)
Quarter: 2011Q1

REPORT INFORMATION
  Report Type: 
  Country: None (occurrence: None)
  Receive Date: 20110303
  Receipt Date: 20110301
  Transmission Date: 20110831
  Serious: Yes (Death, Hospitalization)
  Sender: FDA-Public Use
  Company Number: US-B.I. PHARMACEUTICALS,INC./RIDGEFIELD-2011-BP-05751BP

PATIENT
  Age: 86 Year
  Sex: Female

DRUGS (7)
  1. FUROSEMIDE [Concomitant]
     Dosage: 20 MG
     Route: 048
  2. PRADAXA [Suspect]
     Indication: ATRIAL FIBRILLATION
     Dosage: 300 MG
     Route: 048
     Dates: start: 20110109
  3. AMIODARONE [Concomitant]
     Dosage: 100 MG
     Route: 048
  4. PRADAXA [Suspect]
     Dosage: 300 MG
     Route: 048
     Dates: end: 20110122
  5. LIPITOR [Concomitant]
     Dosage: 20 MG
     Route: 048
  6. METOPROLOL TARTRATE [Concomitant]
     Dosage: 25 MG
     Route: 048
  7. ANALAPRIL [Concomitant]
     Dosage: 5 MG
     Route: 048

REACTIONS (4)
  - HAEMORRHAGE [None]
  - HIP FRACTURE [None]
  - FALL [None]
  - DEATH [None]
